FAERS Safety Report 11717811 (Version 1)
Quarter: 2015Q4

REPORT INFORMATION
  Report Type: Spontaneous
  Country: US (occurrence: None)
  Receive Date: 20151109
  Receipt Date: 20151109
  Transmission Date: 20160304
  Serious: Yes (Hospitalization)
  Sender: FDA-Public Use
  Company Number: None

PATIENT
  Age: 41 Year
  Sex: Female

DRUGS (1)
  1. KEFLEX [Suspect]
     Active Substance: CEPHALEXIN
     Indication: CELLULITIS
     Dates: start: 20140820, end: 20140827

REACTIONS (4)
  - International normalised ratio increased [None]
  - Drug-induced liver injury [None]
  - Acute hepatic failure [None]
  - Hepatic encephalopathy [None]

NARRATIVE: CASE EVENT DATE: 20140827
